FAERS Safety Report 15701682 (Version 3)
Quarter: 2018Q4

REPORT INFORMATION
  Report Type: Report from Study
  Country: US (occurrence: US)
  Receive Date: 20181208
  Receipt Date: 20181230
  Transmission Date: 20190205
  Serious: No
  Sender: FDA-Public Use
  Company Number: PHEH2018US050794

PATIENT
  Age: 63 Year
  Sex: Male

DRUGS (3)
  1. LASIX [Suspect]
     Active Substance: FUROSEMIDE
     Indication: ATRIAL FIBRILLATION
     Dosage: UNK
     Route: 065
  2. ASPIRIN. [Suspect]
     Active Substance: ASPIRIN
     Indication: ATRIAL FIBRILLATION
     Dosage: UNK
     Route: 065
  3. ENTRESTO [Suspect]
     Active Substance: SACUBITRIL\VALSARTAN
     Indication: ATRIAL FIBRILLATION
     Dosage: UNK
     Route: 048

REACTIONS (10)
  - Dizziness [Unknown]
  - Product use in unapproved indication [Unknown]
  - Heart rate decreased [Unknown]
  - Blood pressure fluctuation [Unknown]
  - Hypotension [Unknown]
  - Dizziness postural [Recovered/Resolved]
  - Drug interaction [Unknown]
  - Blood potassium increased [Unknown]
  - Alopecia [Unknown]
  - Hair colour changes [Unknown]

NARRATIVE: CASE EVENT DATE: 201809
